FAERS Safety Report 14032118 (Version 3)
Quarter: 2017Q4

REPORT INFORMATION
  Report Type: Report from Study
  Country: US (occurrence: US)
  Receive Date: 20171002
  Receipt Date: 20171127
  Transmission Date: 20180321
  Serious: Yes (Other)
  Sender: FDA-Public Use
  Company Number: US-PFIZER INC-2017317837

PATIENT
  Age: 80 Year
  Sex: Female

DRUGS (2)
  1. IBRANCE [Suspect]
     Active Substance: PALBOCICLIB
     Dosage: 100 MG, DAILY
     Route: 048
     Dates: start: 20171019, end: 20171115
  2. IBRANCE [Suspect]
     Active Substance: PALBOCICLIB
     Indication: BREAST CANCER
     Dosage: 125 MG, DAILY
     Route: 048
     Dates: start: 20170628, end: 20171018

REACTIONS (14)
  - Nasopharyngitis [Unknown]
  - Dyspnoea [Not Recovered/Not Resolved]
  - Fatigue [Unknown]
  - Rhinorrhoea [Unknown]
  - Hypertension [Recovered/Resolved]
  - White blood cell count decreased [Not Recovered/Not Resolved]
  - Weight increased [Recovered/Resolved]
  - Vomiting [Unknown]
  - Headache [Unknown]
  - Nausea [Recovered/Resolved]
  - Lacrimation increased [Unknown]
  - Dizziness [Recovered/Resolved]
  - Bone marrow failure [Not Recovered/Not Resolved]
  - Vision blurred [Recovered/Resolved]

NARRATIVE: CASE EVENT DATE: 2017
